FAERS Safety Report 9262566 (Version 1)
Quarter: 2013Q2

REPORT INFORMATION
  Report Type: Spontaneous
  Country: FR (occurrence: FR)
  Receive Date: 20130430
  Receipt Date: 20130430
  Transmission Date: 20140414
  Serious: Yes (Hospitalization)
  Sender: FDA-Public Use
  Company Number: FR-AMGEN-FRASP2013028207

PATIENT
  Age: 75 Year
  Sex: Female

DRUGS (9)
  1. XGEVA [Suspect]
     Indication: BREAST CANCER METASTATIC
     Dosage: 120 MG, UNK
     Dates: start: 20130205, end: 20130305
  2. RETACRIT [Suspect]
     Indication: PRODUCT USED FOR UNKNOWN INDICATION
     Dosage: 3000 IU/0.75 ML
     Dates: start: 20130301
  3. XELODA [Suspect]
     Indication: PRODUCT USED FOR UNKNOWN INDICATION
     Dosage: UNK
     Dates: start: 20130211, end: 20130224
  4. TRIVASTAL                          /00397201/ [Concomitant]
  5. MANTADIX [Concomitant]
  6. MODOPAR [Concomitant]
  7. PANTOPRAZOLE [Concomitant]
  8. TOPALGIC                           /00599202/ [Concomitant]
  9. DAFALGAN [Concomitant]

REACTIONS (1)
  - Supraventricular tachycardia [Recovered/Resolved]
